FAERS Safety Report 5636955-7 (Version None)
Quarter: 2008Q1

REPORT INFORMATION
  Report Type: 
  Country: None (occurrence: None)
  Receive Date: 20080225
  Receipt Date: 20080219
  Transmission Date: 20080703
  Serious: Yes (Death)
  Sender: FDA-Public Use
  Company Number: DE-AVENTIS-200810473DE

PATIENT
  Age: 81 Year
  Sex: Female

DRUGS (25)
  1. NOVALGIN                           /00039501/ [Suspect]
     Indication: PAIN
     Route: 048
     Dates: start: 20050711, end: 20050711
  2. NOVALGIN                           /00039501/ [Suspect]
     Route: 048
     Dates: start: 20050713, end: 20050713
  3. TRENTAL [Suspect]
     Route: 048
     Dates: start: 20050609, end: 20050722
  4. LISINOPRIL [Suspect]
     Route: 048
     Dates: start: 20050628, end: 20050723
  5. ALLOPURINOL [Suspect]
     Route: 048
     Dates: start: 20050701, end: 20050723
  6. PANTOZOL                           /01263202/ [Suspect]
     Dosage: DOSE: 0-0-1 1-0-1
     Route: 048
     Dates: start: 20050617, end: 20050628
  7. PANTOZOL                           /01263202/ [Suspect]
     Dosage: DOSE: 0-0-1 1-0-1
     Route: 048
     Dates: start: 20050714, end: 20050723
  8. MOVICOL                            /01053601/ [Suspect]
     Indication: CONSTIPATION
     Route: 048
     Dates: start: 20050716, end: 20050723
  9. HEPARIN [Suspect]
     Route: 058
     Dates: start: 20050629, end: 20050723
  10. ASPIRIN [Suspect]
     Indication: ATRIAL FIBRILLATION
     Route: 048
     Dates: start: 20050617, end: 20050722
  11. LACTULOSE [Suspect]
     Indication: CONSTIPATION
     Route: 048
     Dates: start: 20050701, end: 20050715
  12. FAVISTAN [Suspect]
     Indication: HYPERTHYROIDISM
     Dosage: DOSE: 1-0-0  2-0-0
     Route: 048
     Dates: start: 20050706, end: 20050723
  13. CIPRAMIL                           /00582602/ [Suspect]
     Indication: DEPRESSION
     Route: 048
     Dates: start: 20050712, end: 20050723
  14. MCP [Suspect]
     Indication: NAUSEA
     Route: 054
     Dates: start: 20050717, end: 20050718
  15. DIGIMERCK [Concomitant]
     Route: 048
     Dates: start: 20040101, end: 20050722
  16. BELOC ZOK [Concomitant]
     Dosage: DOSE: 1-0-1 1-0-1/2
     Route: 048
     Dates: start: 20040101, end: 20050723
  17. TORSEMIDE [Concomitant]
     Dosage: DOSE: 1-0-0  1-0-1
     Route: 048
     Dates: start: 20040101, end: 20050723
  18. STEROFUNDIN                        /00177701/ [Concomitant]
     Dosage: DOSE: 100ML  600ML
     Route: 042
     Dates: start: 20050717, end: 20050727
  19. STEROFUNDIN                        /00177701/ [Concomitant]
     Dosage: DOSE: 100ML  600ML
     Route: 042
     Dates: start: 20050719, end: 20050720
  20. STEROFUNDIN                        /00177701/ [Concomitant]
     Dosage: DOSE: 100ML  600ML
     Route: 042
     Dates: start: 20050722, end: 20050722
  21. TRIMIPRAMINE MALEATE [Concomitant]
     Indication: DEPRESSION
     Route: 048
     Dates: start: 20050718, end: 20050721
  22. NATRIUMCHLORID [Concomitant]
     Dosage: DOSE: 2-2-2
     Route: 048
     Dates: start: 20050720, end: 20050723
  23. NITROGLYCERIN [Concomitant]
     Indication: HYPERTENSION
     Dosage: DOSE: 2 PUFFS
     Route: 048
     Dates: start: 20050722, end: 20050722
  24. ACETAMINOPHEN [Concomitant]
     Route: 054
     Dates: start: 20050723, end: 20050723
  25. AGGRENOX [Concomitant]
     Indication: ATRIAL FIBRILLATION
     Dosage: DOSE: 1-0-1
     Route: 048
     Dates: start: 20050723, end: 20050723

REACTIONS (7)
  - BLISTER [None]
  - LIP EROSION [None]
  - ORAL PAIN [None]
  - PRURITUS [None]
  - PYREXIA [None]
  - RASH MACULAR [None]
  - STEVENS-JOHNSON SYNDROME [None]
